FAERS Safety Report 8920006 (Version 2)
Quarter: 2013Q1

REPORT INFORMATION
  Report Type: Spontaneous
  Country: US (occurrence: US)
  Receive Date: 20121121
  Receipt Date: 20130103
  Transmission Date: 20140127
  Serious: No
  Sender: FDA-Public Use
  Company Number: US-PFIZER INC-2012291407

PATIENT
  Age: 93 Year
  Sex: Female
  Weight: 55.78 kg

DRUGS (2)
  1. LYRICA [Suspect]
     Indication: PAIN
     Dosage: 100 MG, 2X/DAY
     Dates: end: 2012
  2. LYRICA [Suspect]
     Indication: FIBROMYALGIA

REACTIONS (2)
  - Pain [Unknown]
  - Abdominal discomfort [Recovered/Resolved]
